FAERS Safety Report 6135392-9 (Version None)
Quarter: 2009Q1

REPORT INFORMATION
  Report Type: 
  Country: None (occurrence: None)
  Receive Date: 20090327
  Receipt Date: 20090323
  Transmission Date: 20090719
  Serious: Yes (Other)
  Sender: FDA-Public Use
  Company Number: US-ELI_LILLY_AND_COMPANY-US200810007590

PATIENT
  Sex: Male
  Weight: 79.365 kg

DRUGS (12)
  1. BYETTA [Suspect]
     Indication: TYPE 2 DIABETES MELLITUS
     Dosage: 5 UG, 2/D
     Route: 058
     Dates: start: 20080501, end: 20080601
  2. BYETTA [Suspect]
     Dosage: 10 UG, 2/D
     Route: 058
     Dates: start: 20080601, end: 20080820
  3. METFORMIN /00082702/ [Concomitant]
     Indication: TYPE 2 DIABETES MELLITUS
     Dates: end: 20080820
  4. GLUCOVANCE [Concomitant]
     Indication: TYPE 2 DIABETES MELLITUS
     Dates: end: 20080501
  5. GLUCOVANCE [Concomitant]
     Dates: start: 20080821
  6. ENALAPRIL [Concomitant]
     Indication: HYPERTENSION
     Dosage: 10 MG, 2/D
     Route: 048
  7. LIPITOR [Concomitant]
     Indication: BLOOD CHOLESTEROL
     Dosage: 20 MG, DAILY (1/D)
     Route: 048
  8. ASPIRIN [Concomitant]
     Indication: CARDIOVASCULAR EVENT PROPHYLAXIS
     Dosage: 325 MG, DAILY (1/D)
     Route: 048
  9. VITAMINS [Concomitant]
  10. BACTRIM DS [Concomitant]
  11. FLONASE [Concomitant]
     Dosage: 50 UG, DAILY (1/D)
     Route: 045
  12. SOMA [Concomitant]
     Indication: MYALGIA
     Dosage: UNK, AS NEEDED

REACTIONS (5)
  - MALAISE [None]
  - NAUSEA [None]
  - PANCREATITIS ACUTE [None]
  - SKIN LACERATION [None]
  - WEIGHT DECREASED [None]
